FAERS Safety Report 21225070 (Version 2)
Quarter: 2022Q3

REPORT INFORMATION
  Report Type: Spontaneous
  Country: US (occurrence: US)
  Receive Date: 20220817
  Receipt Date: 20220921
  Transmission Date: 20221026
  Serious: Yes (Disabling)
  Sender: FDA-Public Use
  Company Number: US-OTSUKA-2022_036616

PATIENT
  Sex: Female
  Weight: 99.79 kg

DRUGS (1)
  1. ABILIFY MAINTENA [Suspect]
     Active Substance: ARIPIPRAZOLE
     Indication: Bipolar disorder
     Dosage: UNKNOWN DOSE: ^LOWEST^
     Route: 065
     Dates: start: 201911, end: 20220705

REACTIONS (9)
  - Condition aggravated [Not Recovered/Not Resolved]
  - COVID-19 [Unknown]
  - Stress [Not Recovered/Not Resolved]
  - Feeling abnormal [Unknown]
  - Compulsions [Not Recovered/Not Resolved]
  - Anxiety [Not Recovered/Not Resolved]
  - Weight increased [Not Recovered/Not Resolved]
  - Gambling disorder [Not Recovered/Not Resolved]
  - Drug ineffective [Unknown]
